FAERS Safety Report 14479611 (Version 1)
Quarter: 2018Q1

REPORT INFORMATION
  Report Type: Spontaneous
  Country: US (occurrence: US)
  Receive Date: 20180201
  Receipt Date: 20180201
  Transmission Date: 20180509
  Serious: No
  Sender: FDA-Public Use
  Company Number: None

PATIENT
  Age: 44 Year
  Sex: Female

DRUGS (1)
  1. VANCOMYCIN 1 GM FRESENIUS KABI USA [Suspect]
     Active Substance: VANCOMYCIN
     Indication: BREAST CELLULITIS
     Route: 042
     Dates: start: 20171010, end: 20171012

REACTIONS (2)
  - Rash [None]
  - Pruritus [None]

NARRATIVE: CASE EVENT DATE: 20171011
